FAERS Safety Report 5412360-3 (Version None)
Quarter: 2007Q3

REPORT INFORMATION
  Report Type: 
  Country: None (occurrence: None)
  Receive Date: 20070713
  Receipt Date: 20070421
  Transmission Date: 20080115
  Serious: No
  Sender: FDA-Public Use
  Company Number: 2007SP001460

PATIENT
  Age: 41 Year
  Sex: Male
  Weight: 113.3993 kg

DRUGS (1)
  1. LUNESTA [Suspect]
     Indication: SLEEP DISORDER
     Dosage: 3 MG;1X;ORAL
     Route: 048
     Dates: start: 20070418, end: 20070418

REACTIONS (1)
  - DYSGEUSIA [None]
